FAERS Safety Report 9190466 (Version 2)
Quarter: 2013Q1

REPORT INFORMATION
  Report Type: Spontaneous
  Country: US (occurrence: US)
  Receive Date: 20130326
  Receipt Date: 20130326
  Transmission Date: 20140127
  Serious: Yes (Death, Other)
  Sender: FDA-Public Use
  Company Number: US-PFIZER INC-HQ5050805NOV2002

PATIENT
  Age: 42 Year
  Sex: Male

DRUGS (3)
  1. EFFEXOR [Suspect]
     Dosage: UNK
  2. MOTRIN [Suspect]
     Dosage: UNK
  3. METFORMIN [Suspect]
     Dosage: UNK

REACTIONS (8)
  - Intentional overdose [Fatal]
  - Completed suicide [Fatal]
  - Stupor [Fatal]
  - Lung infiltration [Fatal]
  - Hypotension [Fatal]
  - Convulsion [Fatal]
  - Unresponsive to stimuli [None]
  - Intentional overdose [None]
